FAERS Safety Report 7713822-6 (Version None)
Quarter: 2011Q3

REPORT INFORMATION
  Report Type: 
  Country: None (occurrence: None)
  Receive Date: 20110826
  Receipt Date: 20110822
  Transmission Date: 20111222
  Serious: No
  Sender: FDA-Public Use
  Company Number: US-PFIZER INC-2011194697

PATIENT
  Sex: Male

DRUGS (1)
  1. SUTENT [Suspect]
     Indication: RENAL CELL CARCINOMA
     Dosage: 50 MG, 1X/DAY FOR 28 DAYS, THEN OFF FOR 2 WEEKS
     Route: 048

REACTIONS (3)
  - GLOSSODYNIA [None]
  - ORAL DISCOMFORT [None]
  - MYALGIA [None]
